FAERS Safety Report 21385670 (Version 1)
Quarter: 2022Q3

REPORT INFORMATION
  Report Type: Spontaneous
  Country: NZ (occurrence: NZ)
  Receive Date: 20220928
  Receipt Date: 20220928
  Transmission Date: 20221026
  Serious: Yes (Other)
  Sender: FDA-Public Use
  Company Number: NZ-MYLANLABS-2022M1037441

PATIENT
  Age: 45 Year
  Sex: Male

DRUGS (1)
  1. CLOZARIL [Suspect]
     Active Substance: CLOZAPINE
     Indication: Schizophrenia
     Dosage: UNK
     Route: 048
     Dates: start: 20151015

REACTIONS (4)
  - Haemoglobin abnormal [Not Recovered/Not Resolved]
  - Red blood cell count increased [Recovering/Resolving]
  - Haematocrit increased [Recovering/Resolving]
  - Mean cell haemoglobin decreased [Recovering/Resolving]

NARRATIVE: CASE EVENT DATE: 20220405
